FAERS Safety Report 7752434-5 (Version None)
Quarter: 2011Q3

REPORT INFORMATION
  Report Type: 
  Country: None (occurrence: None)
  Receive Date: 20110915
  Receipt Date: 20110912
  Transmission Date: 20111222
  Serious: Yes (Death)
  Sender: FDA-Public Use
  Company Number: PHEH2011US03998

PATIENT
  Age: 70 Year
  Sex: Female

DRUGS (2)
  1. EXELON [Suspect]
     Dosage: UNK UKN, UNK
     Route: 062
  2. FENTANYL [Concomitant]
     Dosage: UNK UKN, UNK
     Route: 062

REACTIONS (1)
  - DEATH [None]
